FAERS Safety Report 19435876 (Version 1)
Quarter: 2021Q2

REPORT INFORMATION
  Report Type: Spontaneous
  Country: GB (occurrence: GB)
  Receive Date: 20210618
  Receipt Date: 20210618
  Transmission Date: 20210717
  Serious: Yes (Other)
  Sender: FDA-Public Use
  Company Number: GB-TEVA-2021-GB-1923615

PATIENT
  Age: 31 Year
  Sex: Male
  Weight: 62 kg

DRUGS (1)
  1. TAMSULOSIN [Suspect]
     Active Substance: TAMSULOSIN
     Indication: ILL-DEFINED DISORDER
     Dates: start: 20210610

REACTIONS (1)
  - Ejaculation delayed [Recovered/Resolved]

NARRATIVE: CASE EVENT DATE: 20210610
